FAERS Safety Report 21299380 (Version 1)
Quarter: 2022Q3

REPORT INFORMATION
  Report Type: Spontaneous
  Country: JP (occurrence: JP)
  Receive Date: 20220906
  Receipt Date: 20220906
  Transmission Date: 20221027
  Serious: Yes (Hospitalization, Other)
  Sender: FDA-Public Use
  Company Number: JP-JNJFOC-20220908760

PATIENT
  Age: 79 Year

DRUGS (4)
  1. VELCADE [Suspect]
     Active Substance: BORTEZOMIB
     Indication: Renal amyloidosis
     Dosage: UNK
     Route: 065
     Dates: start: 20220628, end: 2022
  2. DARATUMUMAB\HYALURONIDASE-FIHJ [Suspect]
     Active Substance: DARATUMUMAB\HYALURONIDASE-FIHJ
     Indication: Renal amyloidosis
     Dosage: 15 MILLILITER, 1/WEEK
     Route: 058
     Dates: start: 20220628, end: 20220726
  3. CYCLOPHOSPHAMIDE [Concomitant]
     Active Substance: CYCLOPHOSPHAMIDE
     Indication: Renal amyloidosis
     Dosage: UNK
     Route: 065
     Dates: start: 20220628, end: 2022
  4. DEXAMETHASONE [Concomitant]
     Active Substance: DEXAMETHASONE
     Indication: Renal amyloidosis
     Dosage: UNK
     Route: 065
     Dates: start: 20220628, end: 2022

REACTIONS (1)
  - Pneumonia cytomegaloviral [Not Recovered/Not Resolved]

NARRATIVE: CASE EVENT DATE: 20220701
